FAERS Safety Report 8523017-4 (Version None)
Quarter: 2012Q3

REPORT INFORMATION
  Report Type: 
  Country: None (occurrence: None)
  Receive Date: 20120720
  Receipt Date: 20120712
  Transmission Date: 20120928
  Serious: Yes (Hospitalization)
  Sender: FDA-Public Use
  Company Number: DE-BRISTOL-MYERS SQUIBB COMPANY-14744346

PATIENT
  Age: 45 Year
  Sex: Male
  Weight: 74 kg

DRUGS (11)
  1. EMEND [Concomitant]
     Dates: start: 20090904, end: 20090904
  2. TEPILTA [Concomitant]
     Dates: start: 20090629, end: 20090804
  3. ETOPOSIDE [Suspect]
     Indication: NON-SMALL CELL LUNG CANCER
     Dosage: 24JUL09 22JUN09-29SEP09.100DAYS ALSO ON 26JUN09-ONG.LAST DOSE 29SEP09 DRUG TAKEN OFF 27OCT10
     Route: 065
     Dates: start: 20090622, end: 20090929
  4. DEXAMETHASONE [Concomitant]
  5. CISPLATIN [Suspect]
     Indication: NON-SMALL CELL LUNG CANCER
     Dosage: 29JUN09-ONG .22JUN09-02OCT09.468 DAYS LAST DOSE:25SEP09-2OCT09 DRUG TAKEN OFF 27OCT10
     Route: 065
     Dates: start: 20090622, end: 20091002
  6. RANITIDINE [Concomitant]
     Dates: start: 20090904, end: 20090904
  7. PANTOPRAZOLE [Concomitant]
     Dates: start: 20090623
  8. FRAXIPARINE [Concomitant]
     Dates: start: 20090625, end: 20090708
  9. OLICLINOMEL [Concomitant]
  10. BISOPROLOL FUMARATE [Concomitant]
     Dates: start: 19890101, end: 20090803
  11. MANNITOL [Concomitant]
     Dates: start: 20090904, end: 20090904

REACTIONS (7)
  - THROMBOPHLEBITIS [None]
  - OESOPHAGITIS [None]
  - NAUSEA [None]
  - DYSPHAGIA [None]
  - LEUKOPENIA [None]
  - NEUTROPENIA [None]
  - LARYNGITIS [None]
